FAERS Safety Report 12973561 (Version 1)
Quarter: 2016Q4

REPORT INFORMATION
  Report Type: Spontaneous
  Country: FR (occurrence: FR)
  Receive Date: 20161124
  Receipt Date: 20161124
  Transmission Date: 20170207
  Serious: Yes (Hospitalization)
  Sender: FDA-Public Use
  Company Number: FR-JNJFOC-20161122575

PATIENT
  Age: 76 Year
  Sex: Female

DRUGS (13)
  1. FUMAFER [Suspect]
     Active Substance: FERROUS FUMARATE
     Indication: PRODUCT USED FOR UNKNOWN INDICATION
     Route: 048
     Dates: end: 20160806
  2. MIRTAZAPINE. [Concomitant]
     Active Substance: MIRTAZAPINE
     Route: 065
  3. REPAGLINIDE. [Concomitant]
     Active Substance: REPAGLINIDE
     Route: 065
  4. LANTUS [Concomitant]
     Active Substance: INSULIN GLARGINE
     Route: 065
  5. PREGABALIN. [Concomitant]
     Active Substance: PREGABALIN
     Route: 065
  6. XARELTO [Suspect]
     Active Substance: RIVAROXABAN
     Indication: ATRIAL FIBRILLATION
     Route: 048
     Dates: end: 20160805
  7. KARDEGIC [Suspect]
     Active Substance: ASPIRIN LYSINE
     Indication: ATRIAL FIBRILLATION
     Route: 048
     Dates: end: 20160805
  8. HYDROCORTISONE. [Suspect]
     Active Substance: HYDROCORTISONE
     Indication: POLYMYALGIA RHEUMATICA
     Route: 048
  9. FUROSEMIDE. [Concomitant]
     Active Substance: FUROSEMIDE
     Route: 065
  10. ESOMEPRAZOLE [Concomitant]
     Active Substance: ESOMEPRAZOLE
     Route: 065
  11. ATORVASTATIN [Concomitant]
     Active Substance: ATORVASTATIN
     Route: 065
  12. DIFFU K [Suspect]
     Active Substance: POTASSIUM CHLORIDE
     Indication: PRODUCT USED FOR UNKNOWN INDICATION
     Dates: end: 20160820
  13. LEVOTHYROX [Concomitant]
     Active Substance: LEVOTHYROXINE
     Route: 065

REACTIONS (3)
  - Gastrointestinal haemorrhage [Recovering/Resolving]
  - Haemorrhagic anaemia [Recovered/Resolved]
  - Gastritis [Recovering/Resolving]

NARRATIVE: CASE EVENT DATE: 201608
